FAERS Safety Report 8200263 (Version 2)
Quarter: 2013Q2

REPORT INFORMATION
  Report Type: Spontaneous
  Country: FR (occurrence: FR)
  Receive Date: 20111026
  Receipt Date: 20130401
  Transmission Date: 20140414
  Serious: Yes (Other)
  Sender: FDA-Public Use
  Company Number: FR-JNJFOC-20111009921

PATIENT
  Sex: Female

DRUGS (7)
  1. DOXORUBICIN HYDROCHLORIDE [Suspect]
     Indication: SARCOMA UTERUS
     Route: 042
  2. IFOSFAMIDE [Suspect]
     Indication: SARCOMA UTERUS
     Route: 065
  3. IFOSFAMIDE [Suspect]
     Indication: SARCOMA UTERUS
     Route: 065
  4. MESNA [Suspect]
     Indication: SARCOMA UTERUS
     Route: 065
  5. CISPLATIN [Suspect]
     Indication: SARCOMA UTERUS
     Route: 065
  6. CISPLATIN [Suspect]
     Indication: SARCOMA UTERUS
     Route: 065
  7. LENOGRASTIM [Suspect]
     Indication: SARCOMA UTERUS
     Route: 065

REACTIONS (1)
  - Nephropathy toxic [Unknown]
